FAERS Safety Report 12878091 (Version 2)
Quarter: 2016Q4

REPORT INFORMATION
  Report Type: Spontaneous
  Country: US (occurrence: US)
  Receive Date: 20161024
  Receipt Date: 20161117
  Transmission Date: 20170207
  Serious: No
  Sender: FDA-Public Use
  Company Number: US-BRISTOL-MYERS SQUIBB COMPANY-BMS-2016-088458

PATIENT
  Sex: Female

DRUGS (1)
  1. OPDIVO [Suspect]
     Active Substance: NIVOLUMAB
     Indication: LUNG NEOPLASM MALIGNANT
     Dosage: UNK, Q2WK
     Route: 065

REACTIONS (10)
  - Rash [Unknown]
  - Pyrexia [Unknown]
  - Fatigue [Unknown]
  - Nausea [Unknown]
  - Vomiting [Unknown]
  - Chest discomfort [Unknown]
  - Hyperhidrosis [Unknown]
  - Somnolence [Unknown]
  - Influenza [Unknown]
  - Pain [Unknown]
